FAERS Safety Report 4335817-5 (Version None)
Quarter: 2004Q2

REPORT INFORMATION
  Report Type: 
  Country: None (occurrence: None)
  Receive Date: 20040409
  Receipt Date: 20040405
  Transmission Date: 20050107
  Serious: Yes (Hospitalization)
  Sender: FDA-Public Use
  Company Number: PHRM2004FR01437

PATIENT
  Age: 74 Year
  Sex: Female

DRUGS (15)
  1. VOLTAREN [Suspect]
     Dosage: 100 MG/DAY
     Route: 048
     Dates: start: 20021130, end: 20021216
  2. TAHOR [Suspect]
     Dosage: 2 DF/DAY
     Route: 048
     Dates: start: 20020917
  3. PREVISCAN [Suspect]
     Dosage: 5 MG, BID
     Route: 048
     Dates: start: 20021207, end: 20021216
  4. RULID [Suspect]
     Dosage: 300 MG/DAY
     Route: 048
     Dates: start: 20021213, end: 20021216
  5. LEVOTHYROXINE SODIUM [Suspect]
     Dosage: 100 A?G/DAY
     Route: 048
     Dates: start: 20020917
  6. CORDARONE [Suspect]
     Dosage: 200 MG, QW4
     Route: 048
     Dates: start: 20020917
  7. TRIFLUCAN [Concomitant]
     Dosage: 50 MG/DAY
     Dates: start: 20021216
  8. ULTRA LEVURA [Concomitant]
     Dosage: 6 DF/DAY
     Route: 048
     Dates: start: 20021213, end: 20021216
  9. KAYEXALATE [Concomitant]
     Dosage: 1 DF, QW4
     Route: 048
     Dates: start: 20021207, end: 20021216
  10. TOPALGIC [Concomitant]
     Dosage: 200 MG/DAY
     Route: 048
     Dates: start: 20020923, end: 20021216
  11. LASIX [Concomitant]
     Dosage: 500 MG, QW4
     Route: 048
     Dates: start: 20020919
  12. LAROXYL [Concomitant]
     Dosage: 50 MG, QD
     Dates: start: 20020917
  13. OMEPRAZOLE [Concomitant]
     Dosage: 20 MG, QD
     Route: 048
     Dates: start: 20020917
  14. NOCTAMID [Concomitant]
     Dosage: 1 MG, QD
     Route: 048
     Dates: start: 20020917
  15. TRIATEC [Concomitant]
     Dosage: 1.25 MG, QW4
     Route: 048
     Dates: start: 20020917

REACTIONS (11)
  - ARTERIOVENOUS FISTULA SITE HAEMORRHAGE [None]
  - BLOOD FIBRINOGEN INCREASED [None]
  - COAGULATION FACTOR X LEVEL DECREASED [None]
  - DRUG INTERACTION [None]
  - FACTOR II DEFICIENCY [None]
  - HAEMATOCRIT DECREASED [None]
  - HAEMOGLOBIN DECREASED [None]
  - INTERNATIONAL NORMALISED RATIO INCREASED [None]
  - PALLOR [None]
  - PROTHROMBIN LEVEL DECREASED [None]
  - SKIN NECROSIS [None]
